FAERS Safety Report 7790879-8 (Version None)
Quarter: 2011Q3

REPORT INFORMATION
  Report Type: 
  Country: None (occurrence: None)
  Receive Date: 20110930
  Receipt Date: 20110921
  Transmission Date: 20111222
  Serious: Yes (Hospitalization, Other)
  Sender: FDA-Public Use
  Company Number: US-ASTRAZENECA-2011SE40818

PATIENT
  Age: 52 Year
  Sex: Female
  Weight: 72.6 kg

DRUGS (7)
  1. LORAZEPAM [Concomitant]
     Indication: ANXIETY
     Dosage: 0.5 QOD
     Route: 048
  2. SEROQUEL XR [Suspect]
     Route: 048
  3. SEROQUEL XR [Suspect]
     Indication: SLEEP DISORDER
     Route: 048
     Dates: start: 20070101
  4. SEROQUEL XR [Suspect]
     Route: 048
  5. SEROQUEL XR [Suspect]
     Indication: POST-TRAUMATIC STRESS DISORDER
     Route: 048
     Dates: start: 20070101
  6. HCTZ WATER PILL [Concomitant]
     Indication: HYPERTENSION
     Route: 048
  7. MUSCLE RELAXNT [Concomitant]
     Route: 048

REACTIONS (1)
  - INTERVERTEBRAL DISC DEGENERATION [None]
